FAERS Safety Report 17371889 (Version 1)
Quarter: 2020Q1

REPORT INFORMATION
  Report Type: Report from Study
  Country: JP (occurrence: JP)
  Receive Date: 20200205
  Receipt Date: 20200205
  Transmission Date: 20200409
  Serious: Yes (Hospitalization)
  Sender: FDA-Public Use
  Company Number: JP-UCBSA-2020004816

PATIENT
  Age: 75 Year
  Sex: Female
  Weight: 33 kg

DRUGS (3)
  1. E KEPPRA [Concomitant]
     Active Substance: LEVETIRACETAM
     Indication: SIMPLE PARTIAL SEIZURES
     Dosage: 1000 MILLIGRAM, DAILY
     Route: 048
     Dates: start: 20190912, end: 20190918
  2. EXCEGRAN [Concomitant]
     Active Substance: ZONISAMIDE
     Indication: SIMPLE PARTIAL SEIZURES
     Dosage: 200 MILLIGRAM, DAILY
     Route: 048
     Dates: start: 20190920
  3. LACOSAMIDE. [Suspect]
     Active Substance: LACOSAMIDE
     Indication: SIMPLE PARTIAL SEIZURES
     Dosage: 100 MILLIGRAM, 2X/DAY (BID)
     Route: 048
     Dates: start: 20190918, end: 20191128

REACTIONS (1)
  - Adverse event [Unknown]
